FAERS Safety Report 6515960-2 (Version None)
Quarter: 2009Q4

REPORT INFORMATION
  Report Type: 
  Country: None (occurrence: None)
  Receive Date: 20091223
  Receipt Date: 20091216
  Transmission Date: 20100525
  Serious: Yes (Other)
  Sender: FDA-Public Use
  Company Number: US-BAXTER-2009BH016888

PATIENT
  Age: 48 Year
  Sex: Male
  Weight: 73 kg

DRUGS (4)
  1. IMMUNE GLOBULIN NOS [Suspect]
     Indication: DRUG LEVEL
     Route: 058
     Dates: start: 20091022, end: 20091022
  2. IMMUNE GLOBULIN NOS [Suspect]
     Route: 058
     Dates: start: 20091015, end: 20091015
  3. IMMUNE GLOBULIN NOS [Suspect]
     Route: 058
     Dates: start: 20091008, end: 20091008
  4. IMMUNE GLOBULIN NOS [Suspect]
     Route: 058
     Dates: start: 20091001, end: 20091001

REACTIONS (1)
  - HAEMOLYTIC ANAEMIA [None]
